FAERS Safety Report 6578277-6 (Version None)
Quarter: 2010Q1

REPORT INFORMATION
  Report Type: 
  Country: None (occurrence: None)
  Receive Date: 20100211
  Receipt Date: 20100208
  Transmission Date: 20100710
  Serious: Yes (Death)
  Sender: FDA-Public Use
  Company Number: B0628308A

PATIENT
  Age: 64 Year
  Sex: Male

DRUGS (1)
  1. HYCAMTIN [Suspect]
     Dosage: 3MG PER DAY
     Route: 048
     Dates: start: 20100106

REACTIONS (1)
  - NEUTROPENIA [None]
